FAERS Safety Report 7249678-8 (Version None)
Quarter: 2011Q1

REPORT INFORMATION
  Report Type: 
  Country: None (occurrence: None)
  Receive Date: 20110128
  Receipt Date: 20110121
  Transmission Date: 20110831
  Serious: Yes (Other)
  Sender: FDA-Public Use
  Company Number: US-RB-019042-11

PATIENT
  Age: 80 Year
  Sex: Male

DRUGS (2)
  1. MUCINEX [Suspect]
     Indication: LUNG DISORDER
     Dosage: PAITENT STARTED DOSING APPROXIMATELY A YEAR AGO.
     Route: 048
  2. NORVASC [Concomitant]

REACTIONS (2)
  - BLOOD PRESSURE INCREASED [None]
  - INCORRECT DRUG ADMINISTRATION DURATION [None]
